FAERS Safety Report 8303263-5 (Version None)
Quarter: 2012Q2

REPORT INFORMATION
  Report Type: 
  Country: None (occurrence: None)
  Receive Date: 20120423
  Receipt Date: 20120413
  Transmission Date: 20120825
  Serious: No
  Sender: FDA-Public Use
  Company Number: US-BIOGENIDEC-2012BI013207

PATIENT
  Age: 44 Year
  Sex: Male

DRUGS (2)
  1. TYSABRI [Suspect]
     Indication: MULTIPLE SCLEROSIS
     Route: 042
     Dates: start: 20080117, end: 20090709
  2. TYSABRI [Suspect]
     Route: 042
     Dates: start: 20110404

REACTIONS (2)
  - JOINT HYPEREXTENSION [None]
  - PERONEAL NERVE PALSY [None]
